FAERS Safety Report 4741738-6 (Version None)
Quarter: 2005Q3

REPORT INFORMATION
  Report Type: 
  Country: None (occurrence: None)
  Receive Date: 20050808
  Receipt Date: 20050726
  Transmission Date: 20060218
  Serious: Yes (Disabling)
  Sender: FDA-Public Use
  Company Number: 2005107667

PATIENT
  Age: 76 Year
  Sex: Male

DRUGS (2)
  1. ALDACTONE [Suspect]
     Indication: HYPERTENSION
     Dosage: 25 MG
  2. ISOPTIN [Concomitant]

REACTIONS (7)
  - BREAST PAIN [None]
  - ERECTILE DYSFUNCTION [None]
  - FATIGUE [None]
  - GYNAECOMASTIA [None]
  - INSOMNIA [None]
  - IRRITABILITY [None]
  - PRURITUS [None]
